FAERS Safety Report 7589610-0 (Version None)
Quarter: 2011Q3

REPORT INFORMATION
  Report Type: 
  Country: None (occurrence: None)
  Receive Date: 20110705
  Receipt Date: 20110630
  Transmission Date: 20111222
  Serious: Yes (Life-Threatening, Hospitalization, Disabling)
  Sender: FDA-Public Use
  Company Number: AU-B.I. PHARMACEUTICALS,INC./RIDGEFIELD-2011-AU-00406AU

PATIENT
  Sex: Male
  Weight: 86 kg

DRUGS (30)
  1. VALPROATE SODIUM [Concomitant]
     Dosage: 1200 MG
  2. JANUVIA [Concomitant]
     Dosage: 50 MG
  3. ZYLOPRIM [Concomitant]
     Dosage: 100 MG
  4. AMIODARONE HCL [Concomitant]
     Dosage: 200 MG
     Route: 048
  5. COLOXYL [Concomitant]
     Dosage: AS NEEDED
  6. LASIX [Concomitant]
     Dosage: 40 MG
  7. AMIODARONE HCL [Concomitant]
     Dosage: 600 MG
     Route: 048
  8. METFORMIN HCL [Concomitant]
     Dosage: 3000 MG
  9. DIAMICRON [Concomitant]
     Dosage: 90 MG
  10. FERRO-F-TAB [Concomitant]
     Dosage: 1 DAILY
  11. PRADAXA [Suspect]
     Indication: ATRIAL FIBRILLATION
     Dosage: 300 MG
     Dates: start: 20110601, end: 20110624
  12. MOBIC [Concomitant]
     Dosage: 15 MG
  13. TEMAZE [Concomitant]
     Dosage: AS REQUIRED
  14. CLARATYNE [Concomitant]
     Dosage: 10 MG
  15. KARVEA [Concomitant]
     Dosage: 75 MG
  16. LEXAPRO [Concomitant]
     Dosage: 40 MG
  17. PRILOSEC [Concomitant]
     Dosage: 20 MG
  18. PANAMAX [Concomitant]
     Dosage: 4000 MG
  19. PRADAXA [Suspect]
     Indication: CARDIAC FAILURE CONGESTIVE
  20. MOVIPREP [Concomitant]
     Dosage: 1 SACHET NOCTE
  21. ZOCOR [Concomitant]
     Dosage: 80 MG
  22. ARTHRO-AID [Concomitant]
     Dosage: 1500 MG
  23. LANOXIN [Concomitant]
     Dosage: 250 MCG
  24. FOLIC ACID [Concomitant]
     Dosage: 5 MG
  25. METHOTREXATE [Concomitant]
     Dosage: ONCE A WEEK
     Route: 048
  26. PANADOL OSTEO [Concomitant]
     Dosage: 3990 MG
  27. PHENERGAN HCL [Concomitant]
     Dosage: AS NEEDED
  28. VALIUM [Concomitant]
     Dosage: 10 MG
  29. ACTOS [Concomitant]
     Dosage: 45 MG
  30. CARVEDILOL [Concomitant]
     Dosage: 25 MG

REACTIONS (1)
  - VENTRICULAR FIBRILLATION [None]
